FAERS Safety Report 8920552 (Version 1)
Quarter: 2012Q4

REPORT INFORMATION
  Report Type: Report from Study
  Country: US (occurrence: US)
  Receive Date: 20121121
  Receipt Date: 20121121
  Transmission Date: 20130627
  Serious: Yes (Hospitalization, Other)
  Sender: FDA-Public Use
  Company Number: US-ABBOTT-12P-163-1007641-00

PATIENT
  Sex: Female
  Weight: 47.67 kg

DRUGS (1)
  1. HUMIRA [Suspect]
     Indication: RHEUMATOID ARTHRITIS
     Dosage: On Humira for many years
     Route: 058

REACTIONS (7)
  - Weight decreased [Recovered/Resolved]
  - Chronic myeloid leukaemia [Not Recovered/Not Resolved]
  - Large intestine perforation [Recovered/Resolved]
  - Neoplasm malignant [Not Recovered/Not Resolved]
  - Hypertension [Not Recovered/Not Resolved]
  - Injection site pain [Recovered/Resolved]
  - Intestinal obstruction [Unknown]
